FAERS Safety Report 14475966 (Version 1)
Quarter: 2018Q1

REPORT INFORMATION
  Report Type: Spontaneous
  Country: FR (occurrence: FR)
  Receive Date: 20180201
  Receipt Date: 20180201
  Transmission Date: 20180509
  Serious: Yes (Hospitalization)
  Sender: FDA-Public Use
  Company Number: FR-NORTHSTAR HEALTHCARE HOLDINGS-FR-2018NSR000008

PATIENT
  Age: 26 Year
  Sex: Female

DRUGS (3)
  1. TAMSULOSINE                        /01280301/ [Concomitant]
     Indication: PRODUCT USED FOR UNKNOWN INDICATION
     Dosage: UNK
  2. DALFAMPRIDINE [Suspect]
     Active Substance: DALFAMPRIDINE
     Indication: PROGRESSIVE MULTIPLE SCLEROSIS
     Dosage: 10 MG, TID
  3. BACLOFEN. [Suspect]
     Active Substance: BACLOFEN
     Indication: PROGRESSIVE MULTIPLE SCLEROSIS
     Dosage: UNK

REACTIONS (2)
  - Status epilepticus [Unknown]
  - Drug interaction [Unknown]
